FAERS Safety Report 12600940 (Version 1)
Quarter: 2016Q3

REPORT INFORMATION
  Report Type: Spontaneous
  Country: US (occurrence: US)
  Receive Date: 20160728
  Receipt Date: 20160728
  Transmission Date: 20161109
  Serious: No
  Sender: FDA-Public Use
  Company Number: US-AUROBINDO-AUR-APU-2016-04231

PATIENT
  Sex: Female
  Weight: 18 kg

DRUGS (1)
  1. SULFAMETHOXAZOLE / TRIMETHOPRIM ORAL SUSPENSION USP 200/40MG PER 5ML [Suspect]
     Active Substance: SULFAMETHOXAZOLE\TRIMETHOPRIM
     Indication: BRONCHITIS
     Dosage: 12.5 ML, 3 TIMES A DAY
     Route: 065
     Dates: start: 20160301, end: 20160321

REACTIONS (2)
  - Drug ineffective [Unknown]
  - Incorrect product storage [Unknown]
